FAERS Safety Report 15906311 (Version 1)
Quarter: 2019Q1

REPORT INFORMATION
  Report Type: Report from Study
  Country: ZA (occurrence: ZA)
  Receive Date: 20190204
  Receipt Date: 20190204
  Transmission Date: 20190417
  Serious: Yes (Hospitalization)
  Sender: FDA-Public Use
  Company Number: ZA-SA-2018SA276630

PATIENT
  Age: 50 Year
  Sex: Male

DRUGS (8)
  1. GLUCOPHAGE [Concomitant]
     Active Substance: METFORMIN HYDROCHLORIDE
     Dosage: 2000 MG, QD
     Dates: start: 20180705
  2. DIAGLUCIDE [Concomitant]
     Active Substance: GLICLAZIDE
     Dosage: 60 MG
     Dates: start: 20180705
  3. NO STUDY DRUG GIVEN [Suspect]
     Active Substance: UNSPECIFIED INGREDIENT
  4. OPTISULIN (INSULIN GLARGINE) [Suspect]
     Active Substance: INSULIN GLARGINE
     Dosage: DN 20IU, BT 14IU
     Dates: start: 20180709
  5. CARDICOR [Concomitant]
     Active Substance: BISOPROLOL
     Dosage: 2.5 MG, QD
     Dates: start: 20180709
  6. ENAP-CO [Concomitant]
     Active Substance: ENALAPRIL MALEATE\HYDROCHLOROTHIAZIDE
     Dosage: 20 MG, QD
     Dates: start: 20180709
  7. ASPAVOR [Concomitant]
     Active Substance: ATORVASTATIN
     Dosage: 20 MG, QD
     Dates: start: 20180709
  8. OPTISULIN (INSULIN GLARGINE) [Suspect]
     Active Substance: INSULIN GLARGINE
     Indication: TYPE 2 DIABETES MELLITUS
     Dosage: 14 U, HS
     Dates: start: 20180705

REACTIONS (3)
  - Infection [Not Recovered/Not Resolved]
  - Inappropriate schedule of product administration [Unknown]
  - Hospitalisation [Unknown]

NARRATIVE: CASE EVENT DATE: 20180709
